FAERS Safety Report 7273065-X (Version None)
Quarter: 2011Q1

REPORT INFORMATION
  Report Type: 
  Country: None (occurrence: None)
  Receive Date: 20110203
  Receipt Date: 20110125
  Transmission Date: 20110831
  Serious: Yes (Other)
  Sender: FDA-Public Use
  Company Number: US-ASTRAZENECA-2010SE26815

PATIENT
  Age: 83 Year
  Sex: Female
  Weight: 57.2 kg

DRUGS (3)
  1. LIPITOR [Concomitant]
  2. CRESTOR [Suspect]
     Route: 048
     Dates: start: 20090901
  3. Q10 [Concomitant]

REACTIONS (4)
  - MUSCLE SPASMS [None]
  - MYOCARDIAL INFARCTION [None]
  - ASTHENIA [None]
  - PAIN IN EXTREMITY [None]
